FAERS Safety Report 17308960 (Version 1)
Quarter: 2020Q1

REPORT INFORMATION
  Report Type: Spontaneous
  Country: US (occurrence: US)
  Receive Date: 20200123
  Receipt Date: 20200123
  Transmission Date: 20200409
  Serious: Yes (Other)
  Sender: FDA-Public Use
  Company Number: None

PATIENT
  Age: 56 Year
  Sex: Female
  Weight: 61.65 kg

DRUGS (12)
  1. TIROSINT-SOL [Concomitant]
     Active Substance: LEVOTHYROXINE SODIUM
  2. MAGNESIUM [Concomitant]
     Active Substance: MAGNESIUM
  3. METFORMIN [Concomitant]
     Active Substance: METFORMIN HYDROCHLORIDE
  4. B6 [Concomitant]
     Active Substance: PYRIDOXINE HYDROCHLORIDE
  5. VITAMIN D3 [Concomitant]
     Active Substance: CHOLECALCIFEROL
  6. TESTOSTERONE (COMPOUNDED) [Concomitant]
  7. DHA [Concomitant]
     Active Substance: DIETARY SUPPLEMENT
  8. ESTRADIOL HEMIHYDRATE [Suspect]
     Active Substance: ESTRADIOL HEMIHYDRATE
     Indication: VULVOVAGINAL DRYNESS
     Dosage: ?          QUANTITY:1 SUPPOSITORY(IES);?
     Route: 067
     Dates: end: 20200121
  9. DIVAGEL [Concomitant]
  10. PROGESTERONE (COMPOUNDED) [Concomitant]
  11. RESTASIS [Concomitant]
     Active Substance: CYCLOSPORINE
  12. LUTEIN [Concomitant]
     Active Substance: LUTEIN

REACTIONS (5)
  - Burning sensation [None]
  - Skin irritation [None]
  - Pain [None]
  - Rash [None]
  - Drug ineffective [None]

NARRATIVE: CASE EVENT DATE: 20200118
